FAERS Safety Report 9138043 (Version 2)
Quarter: 2013Q2

REPORT INFORMATION
  Report Type: Spontaneous
  Country: GB (occurrence: GB)
  Receive Date: 20130304
  Receipt Date: 20130425
  Transmission Date: 20140414
  Serious: Yes (Hospitalization, Disabling, Other)
  Sender: FDA-Public Use
  Company Number: GB-ALLERGAN-1302908US

PATIENT
  Age: 74 Year
  Sex: Male

DRUGS (3)
  1. BOTOX [Suspect]
     Indication: MUSCLE SPASTICITY
     Dosage: 100 UNITS, SINGLE
     Route: 030
     Dates: start: 20110922, end: 20110922
  2. BOTOX [Suspect]
     Dosage: 100 UNITS, UNK
  3. BOTOX [Suspect]
     Dosage: 100 UNITS, SINGLE
     Dates: start: 20120913, end: 20120913

REACTIONS (4)
  - Grand mal convulsion [Recovering/Resolving]
  - Mobility decreased [Recovering/Resolving]
  - Dyskinesia [Recovering/Resolving]
  - Psychiatric symptom [Recovering/Resolving]
